FAERS Safety Report 21316616 (Version 1)
Quarter: 2022Q3

REPORT INFORMATION
  Report Type: Spontaneous
  Country: US (occurrence: US)
  Receive Date: 20220911
  Receipt Date: 20220911
  Transmission Date: 20221027
  Serious: No
  Sender: FDA-Public Use
  Company Number: US-SA-SAC20220817001735

PATIENT
  Age: 52 Year
  Sex: Female

DRUGS (1)
  1. DUPIXENT [Suspect]
     Active Substance: DUPILUMAB
     Indication: Asthma
     Dosage: 300 MG, QOD
     Route: 058
     Dates: start: 20210323

REACTIONS (3)
  - Mental disorder [Unknown]
  - General physical condition [Unknown]
  - Product use issue [Unknown]

NARRATIVE: CASE EVENT DATE: 20210323
